FAERS Safety Report 23897732 (Version 1)
Quarter: 2024Q2

REPORT INFORMATION
  Report Type: Report from Study
  Country: US (occurrence: US)
  Receive Date: 20240524
  Receipt Date: 20240524
  Transmission Date: 20240715
  Serious: Yes (Hospitalization, Other)
  Sender: FDA-Public Use
  Company Number: US-BAYER-2024A065990

PATIENT
  Age: 85 Year
  Sex: Male

DRUGS (1)
  1. NUBEQA [Suspect]
     Active Substance: DAROLUTAMIDE
     Indication: Prostate cancer
     Dosage: 600 MG, BID WITH FOOD
     Route: 048
     Dates: start: 202402

REACTIONS (3)
  - Weight increased [Unknown]
  - Oedema peripheral [Unknown]
  - Hospitalisation [None]

NARRATIVE: CASE EVENT DATE: 20240501
